FAERS Safety Report 15127137 (Version 1)
Quarter: 2018Q3

REPORT INFORMATION
  Report Type: Spontaneous
  Country: US (occurrence: US)
  Receive Date: 20180614
  Receipt Date: 20180614
  Transmission Date: 20181010
  Serious: Yes (Hospitalization, Other)
  Sender: FDA-Public Use
  Company Number: None

PATIENT
  Age: 85 Year
  Sex: Female
  Weight: 63.9 kg

DRUGS (5)
  1. XARELTO 20 MG DAILY [Concomitant]
     Dates: start: 20180609, end: 20180610
  2. XARELTO [Suspect]
     Active Substance: RIVAROXABAN
     Indication: ATRIAL FIBRILLATION
     Route: 048
     Dates: start: 20180609, end: 20180610
  3. LOVENOX 60 MG BID [Concomitant]
     Dates: start: 20180608, end: 20180612
  4. LOVENOX [Suspect]
     Active Substance: ENOXAPARIN SODIUM
     Indication: ANTICOAGULANT THERAPY
     Route: 058
     Dates: start: 20180608, end: 20180612
  5. LOVENOX [Suspect]
     Active Substance: ENOXAPARIN SODIUM
     Indication: THROMBOSIS PROPHYLAXIS
     Route: 058
     Dates: start: 20180608, end: 20180612

REACTIONS (1)
  - Haematuria [None]

NARRATIVE: CASE EVENT DATE: 20180609
